FAERS Safety Report 11023124 (Version 2)
Quarter: 2015Q2

REPORT INFORMATION
  Report Type: Spontaneous
  Country: US (occurrence: US)
  Receive Date: 20150413
  Receipt Date: 20150525
  Transmission Date: 20150821
  Serious: No
  Sender: FDA-Public Use
  Company Number: US-JNJFOC-20140311966

PATIENT
  Sex: Female

DRUGS (26)
  1. INSULIN [Concomitant]
     Active Substance: INSULIN NOS
     Indication: DIABETES MELLITUS
     Dosage: 30G X 1/2^ 1 ML
     Route: 065
  2. SULFAZINE [Concomitant]
     Active Substance: SULFASALAZINE
     Route: 048
  3. FLUOXETINE HCL [Concomitant]
     Active Substance: FLUOXETINE HYDROCHLORIDE
     Indication: DEPRESSION
     Route: 048
  4. ASPIRIN. [Concomitant]
     Active Substance: ASPIRIN
     Route: 048
  5. INSULIN [Concomitant]
     Active Substance: INSULIN NOS
     Indication: DIABETES MELLITUS
     Dosage: 29G X 1/2^ 1 ML
     Route: 065
  6. ENALAPRIL MALEATE. [Concomitant]
     Active Substance: ENALAPRIL MALEATE
     Route: 048
  7. LYRICA [Concomitant]
     Active Substance: PREGABALIN
     Route: 048
  8. METFORMIN HCL [Concomitant]
     Active Substance: METFORMIN HYDROCHLORIDE
     Route: 048
  9. METHOTREXATE SODIUM. [Concomitant]
     Active Substance: METHOTREXATE SODIUM
     Route: 050
  10. ORENCIA [Concomitant]
     Active Substance: ABATACEPT
     Dosage: 12 GM
     Route: 058
  11. FLUTICASONE PROPIONATE. [Concomitant]
     Active Substance: FLUTICASONE PROPIONATE
     Route: 045
  12. LANTUS [Concomitant]
     Active Substance: INSULIN GLARGINE
     Indication: DIABETES MELLITUS
     Route: 065
  13. METAXALONE. [Concomitant]
     Active Substance: METAXALONE
     Route: 048
  14. TRAZODONE HYDROCHLORIDE. [Concomitant]
     Active Substance: TRAZODONE HYDROCHLORIDE
     Route: 048
  15. SALSALATE. [Concomitant]
     Active Substance: SALSALATE
     Route: 048
  16. LEVAQUIN [Suspect]
     Active Substance: LEVOFLOXACIN
     Indication: PRODUCT USED FOR UNKNOWN INDICATION
     Route: 065
  17. FOLIC ACID. [Concomitant]
     Active Substance: FOLIC ACID
     Route: 048
  18. LORATADINE. [Concomitant]
     Active Substance: LORATADINE
     Dosage: MORNINGS AS NEEDED
     Route: 048
  19. PRAVASTATIN SODIUM. [Concomitant]
     Active Substance: PRAVASTATIN SODIUM
     Route: 048
  20. SYNTHROID [Concomitant]
     Active Substance: LEVOTHYROXINE SODIUM
     Route: 048
  21. MULTIVITAMINS [Concomitant]
     Active Substance: VITAMINS
     Route: 065
  22. NEXIUM [Concomitant]
     Active Substance: ESOMEPRAZOLE MAGNESIUM
     Indication: GASTROOESOPHAGEAL REFLUX DISEASE
     Route: 048
  23. VOLTAREN [Concomitant]
     Active Substance: DICLOFENAC SODIUM
     Dosage: APPLY ONE INCH TO AFFECTED AREA
     Route: 065
  24. INSULIN [Concomitant]
     Active Substance: INSULIN NOS
     Indication: DIABETES MELLITUS
     Dosage: 28G X 1/2^ 1 ML
     Route: 065
  25. CITRACAL PLUS [Concomitant]
     Active Substance: CALCIUM\MAGNESIUM\VITAMIN D\ZINC
     Route: 048
  26. TRAMADOL HYDROCHLORIDE. [Concomitant]
     Active Substance: TRAMADOL HYDROCHLORIDE
     Dosage: 1-2 AS NEEDED
     Route: 048

REACTIONS (1)
  - Drug hypersensitivity [Unknown]
